FAERS Safety Report 15347043 (Version 1)
Quarter: 2018Q3

REPORT INFORMATION
  Report Type: Spontaneous
  Country: US (occurrence: US)
  Receive Date: 20180904
  Receipt Date: 20180904
  Transmission Date: 20181010
  Serious: Yes (Hospitalization)
  Sender: FDA-Public Use
  Company Number: US-HORIZON-PRO-0163-2018

PATIENT
  Age: 18 Year
  Sex: Female

DRUGS (18)
  1. FERROUS SULFATE. [Concomitant]
     Active Substance: FERROUS SULFATE
     Dosage: 324 MG TAB QD
  2. SYNTHROID [Concomitant]
     Active Substance: LEVOTHYROXINE SODIUM
     Dosage: 75MCG QD
  3. NOVOLIN N [Concomitant]
     Active Substance: INSULIN HUMAN
     Dosage: 100 UNITS/ML SLIDING SCALE
  4. SENSIPAR [Concomitant]
     Active Substance: CINACALCET HYDROCHLORIDE
     Dosage: 30 QD
  5. EPOGEN [Concomitant]
     Active Substance: ERYTHROPOIETIN
     Dosage: MONTHLY PER MOM AT HOME BASED ON HEMOGLOBIN
  6. LOSARTAN. [Concomitant]
     Active Substance: LOSARTAN
     Dosage: 25MG QD
  7. AMLODIPINE [Concomitant]
     Active Substance: AMLODIPINE BESYLATE
     Dosage: 10 MG QD
  8. CHOLECALCIFEROL [Concomitant]
     Active Substance: CHOLECALCIFEROL
     Dosage: 2000 IU CAPSULES PO QD
     Route: 048
  9. CALCITRIOL. [Concomitant]
     Active Substance: CALCITRIOL
     Dosage: 0.5 ?G QD
  10. CALCIUM CARBONATE. [Concomitant]
     Active Substance: CALCIUM CARBONATE
     Dosage: 2 TABLETS TID
  11. GENTAMYCIN [Concomitant]
     Active Substance: GENTAMICIN
     Dosage: 0.1 % APPLY QD AS DIRECTED
  12. NOVOLOG [Concomitant]
     Active Substance: INSULIN ASPART
     Dosage: 100 UNITS/ML SLIDING SCALE
  13. CYSTAGON [Concomitant]
     Active Substance: CYSTEAMINE BITARTRATE
     Dosage: 150 MG 2 CAPS PO QID
     Route: 048
  14. GLUCAGON. [Concomitant]
     Active Substance: GLUCAGON
     Dosage: PRN FOR HYPOGLYCEMIA
  15. ZYRTEC [Concomitant]
     Active Substance: CETIRIZINE HYDROCHLORIDE
     Dosage: 10 MG QD
  16. POTASSIUM CHLORIDE. [Concomitant]
     Active Substance: POTASSIUM CHLORIDE
     Dosage: 20 MEQ BID
  17. PROCYSBI [Suspect]
     Active Substance: CYSTEAMINE BITARTRATE
     Indication: CYSTINOSIS
     Dosage: 150 MG TWICE DAILY (BID)
  18. FLOVENT [Concomitant]
     Active Substance: FLUTICASONE PROPIONATE
     Dosage: 110 ?G QD

REACTIONS (3)
  - Abscess drainage [Recovered/Resolved]
  - Subcutaneous abscess [Recovered/Resolved]
  - Abscess management [Recovered/Resolved]

NARRATIVE: CASE EVENT DATE: 201807
